FAERS Safety Report 7129169-5 (Version None)
Quarter: 2010Q4

REPORT INFORMATION
  Report Type: 
  Country: None (occurrence: None)
  Receive Date: 20101116
  Receipt Date: 20101110
  Transmission Date: 20110411
  Serious: Yes (Death, Hospitalization)
  Sender: FDA-Public Use
  Company Number: 2010US003966

PATIENT
  Age: 48 Year
  Sex: Female
  Weight: 63 kg

DRUGS (10)
  1. PROGRAF [Suspect]
     Indication: RENAL TRANSPLANT
     Dosage: 3 MG IN AM AND 2 MG IN PM, ORAL; 3 MG, BID, ORAL, 3MG, UID/QD
     Route: 048
     Dates: start: 20061215
  2. CELLCEPT [Concomitant]
  3. PREDNISONE TAB [Concomitant]
  4. THYMOGLOBULIN [Concomitant]
  5. MULTIVITAMINS, COMBINATIONS [Concomitant]
  6. LEVOTHYROXINE SODIUM [Concomitant]
  7. FOLIC ACID [Concomitant]
  8. NIFEDIPINE [Concomitant]
  9. METOPROLOL SUCCINATE [Concomitant]
  10. LISINOPRIL [Concomitant]

REACTIONS (19)
  - ANAL ABSCESS [None]
  - DISCOMFORT [None]
  - ESCHERICHIA URINARY TRACT INFECTION [None]
  - GASTROENTERITIS [None]
  - HAEMORRHAGE [None]
  - HYPERTHYROIDISM [None]
  - LACTOBACILLUS INFECTION [None]
  - METASTASES TO BONE [None]
  - METASTASES TO LIVER [None]
  - METASTASES TO LYMPH NODES [None]
  - METASTASES TO SPINE [None]
  - RENAL FAILURE ACUTE [None]
  - SCAB [None]
  - SMALL CELL CARCINOMA [None]
  - STRESS URINARY INCONTINENCE [None]
  - THROMBOCYTOPENIA [None]
  - URETERIC CANCER METASTATIC [None]
  - URINARY TRACT INFECTION [None]
  - URINARY TRACT INFECTION PSEUDOMONAL [None]
